FAERS Safety Report 6615323-5 (Version None)
Quarter: 2010Q1

REPORT INFORMATION
  Report Type: 
  Country: None (occurrence: None)
  Receive Date: 20100305
  Receipt Date: 20091111
  Transmission Date: 20100710
  Serious: No
  Sender: FDA-Public Use
  Company Number: A0796245A

PATIENT
  Age: 55 Year
  Sex: Female
  Weight: 79.5 kg

DRUGS (11)
  1. REQUIP [Suspect]
     Indication: RESTLESS LEGS SYNDROME
     Route: 048
     Dates: end: 20090101
  2. PRILOSEC [Concomitant]
  3. RESTORIL [Concomitant]
  4. NASONEX [Concomitant]
  5. COMBIVENT [Concomitant]
  6. PROZAC [Concomitant]
  7. CLARITIN [Concomitant]
  8. ESTRADIOL [Concomitant]
  9. VALTREX [Concomitant]
  10. PROPRANOLOL [Concomitant]
  11. CRESTOR [Concomitant]

REACTIONS (1)
  - GAMBLING [None]
